FAERS Safety Report 4917935-3 (Version None)
Quarter: 2006Q1

REPORT INFORMATION
  Report Type: 
  Country: None (occurrence: None)
  Receive Date: 20060221
  Receipt Date: 20051011
  Transmission Date: 20060701
  Serious: Yes (Hospitalization, Other)
  Sender: FDA-Public Use
  Company Number: US-MERCK-0510USA06581

PATIENT
  Age: 58 Year
  Sex: Female

DRUGS (1)
  1. VIOXX [Suspect]
     Route: 048
     Dates: start: 20020101, end: 20031101

REACTIONS (8)
  - ABDOMINAL PAIN [None]
  - ANGINA UNSTABLE [None]
  - CHEST PAIN [None]
  - MYOCARDIAL INFARCTION [None]
  - PNEUMONIA [None]
  - POLYSUBSTANCE ABUSE [None]
  - RECTAL HAEMORRHAGE [None]
  - URINARY TRACT INFECTION [None]
